FAERS Safety Report 8766441 (Version 1)
Quarter: 2012Q4

REPORT INFORMATION
  Report Type: 
  Country: PL (occurrence: PL)
  Receive Date: 20120904
  Receipt Date: 20120904
  Transmission Date: 20130627
  Serious: Yes (Other)
  Sender: FDA-Public Use
  Company Number: PL-ROCHE-1009057

PATIENT
  Sex: Female
  Weight: 120 kg

DRUGS (22)
  1. MIRCERA [Suspect]
     Indication: NEPHROGENIC ANAEMIA
     Route: 065
     Dates: start: 201103, end: 20110508
  2. ARANESP [Suspect]
     Indication: ANAEMIA
     Route: 065
     Dates: start: 2009, end: 201101
  3. ARANESP [Suspect]
     Route: 065
     Dates: start: 201101, end: 201103
  4. BINOCRIT [Suspect]
     Indication: PRODUCT USED FOR UNKNOWN INDICATION
     Dosage: 6000j/week
     Route: 042
     Dates: start: 20110508, end: 20110517
  5. BINOCRIT [Suspect]
     Dosage: 9000j/week
     Route: 065
     Dates: start: 20110517, end: 20110706
  6. BINOCRIT [Suspect]
     Dosage: 12000j/week
     Route: 065
     Dates: start: 20110706, end: 20111009
  7. BINOCRIT [Suspect]
     Dosage: 15000j/week
     Route: 065
     Dates: start: 20111009, end: 20111031
  8. AMLOZEK [Concomitant]
     Indication: ATRIAL FIBRILLATION
     Route: 048
     Dates: start: 2008
  9. BISOCARD [Concomitant]
     Indication: ATRIAL FIBRILLATION
     Route: 048
     Dates: start: 200803
  10. IPOREL [Concomitant]
     Indication: ATRIAL FIBRILLATION
     Route: 048
     Dates: start: 201101
  11. FUROSEMIDE [Concomitant]
     Indication: RENAL FAILURE
     Route: 048
     Dates: start: 200803
  12. ATORIS [Concomitant]
     Indication: HYPERCHOLESTEROLAEMIA
     Route: 048
     Dates: start: 201101
  13. MILURIT [Concomitant]
     Route: 065
     Dates: start: 201101, end: 201110
  14. ALFADIOL [Concomitant]
     Route: 065
     Dates: start: 201101
  15. CALPEROS [Concomitant]
     Route: 065
  16. INSULIN MIXTARD 30 HM [Concomitant]
     Route: 065
     Dates: start: 2006
  17. INSULIN NOVO ACTRAPID [Concomitant]
     Route: 065
     Dates: start: 2006
  18. PRAZOL (POLAND) [Concomitant]
     Route: 065
     Dates: start: 20110517
  19. CLEXANE [Concomitant]
     Route: 065
     Dates: start: 20110630, end: 20111001
  20. FOLIC ACID [Concomitant]
     Route: 065
     Dates: start: 20110630
  21. COSMOFER [Concomitant]
     Route: 065
     Dates: start: 201101
  22. ENCORTON [Concomitant]
     Route: 048
     Dates: start: 20110517, end: 20111007

REACTIONS (1)
  - Aplasia pure red cell [Unknown]
